FAERS Safety Report 4860659-1 (Version None)
Quarter: 2005Q4

REPORT INFORMATION
  Report Type: 
  Country: None (occurrence: None)
  Receive Date: 20051216
  Receipt Date: 20051205
  Transmission Date: 20060501
  Serious: Yes (Hospitalization)
  Sender: FDA-Public Use
  Company Number: 220110

PATIENT
  Age: 81 Year
  Sex: Male

DRUGS (3)
  1. AVASTIN [Suspect]
     Indication: COLORECTAL CANCER METASTATIC
     Dates: start: 20061001, end: 20051101
  2. XELODA [Concomitant]
  3. ISOSORBIDE (ISOSORBIDE NOS) [Concomitant]

REACTIONS (5)
  - ANOREXIA [None]
  - ASTHENIA [None]
  - INTESTINAL ISCHAEMIA [None]
  - PYREXIA [None]
  - VOMITING [None]
